FAERS Safety Report 5107433-9 (Version None)
Quarter: 2006Q3

REPORT INFORMATION
  Report Type: 
  Country: None (occurrence: None)
  Receive Date: 20060731
  Receipt Date: 20060401
  Transmission Date: 20061208
  Serious: No
  Sender: FDA-Public Use
  Company Number: 2006PV011364

PATIENT
  Age: 41 Year
  Sex: Female
  Weight: 117.9352 kg

DRUGS (7)
  1. BYETTA [Suspect]
     Indication: DIABETES MELLITUS NON-INSULIN-DEPENDENT
     Dosage: 10 MCG BID SC ; 5 MCG BID SC
     Route: 058
     Dates: start: 20060310, end: 20060320
  2. BYETTA [Suspect]
     Indication: DIABETES MELLITUS NON-INSULIN-DEPENDENT
     Dosage: 10 MCG BID SC ; 5 MCG BID SC
     Route: 058
     Dates: start: 20060321
  3. LANTUS [Concomitant]
  4. HUMALOG [Concomitant]
  5. NEURONTIN [Concomitant]
  6. IBUPROFEN [Concomitant]
  7. TRAMADOL HCL [Concomitant]

REACTIONS (3)
  - DECREASED APPETITE [None]
  - THERAPEUTIC RESPONSE UNEXPECTED [None]
  - WEIGHT DECREASED [None]
